FAERS Safety Report 24438453 (Version 6)
Quarter: 2024Q4

REPORT INFORMATION
  Report Type: Spontaneous
  Country: US (occurrence: US)
  Receive Date: 20241015
  Receipt Date: 20241217
  Transmission Date: 20250114
  Serious: No
  Sender: PFIZER
  Company Number: US-PFIZER INC-202400275763

PATIENT
  Age: 36 Year
  Sex: Male
  Weight: 62.9 kg

DRUGS (5)
  1. ADCETRIS [Suspect]
     Active Substance: BRENTUXIMAB VEDOTIN
     Dosage: 64 MG
  2. ADCETRIS [Suspect]
     Active Substance: BRENTUXIMAB VEDOTIN
     Dosage: 72.5 MG INFUSION, EVERY 14 DAYS
     Dates: start: 20240926
  3. ADCETRIS [Suspect]
     Active Substance: BRENTUXIMAB VEDOTIN
     Dosage: 76 MG, EVERY TWO WEEKS INFUSION
     Dates: start: 20241113
  4. ADCETRIS [Suspect]
     Active Substance: BRENTUXIMAB VEDOTIN
     Dosage: EVERY 2 WEEKS
  5. ADCETRIS [Suspect]
     Active Substance: BRENTUXIMAB VEDOTIN
     Dosage: EVERY 14 DAYS

REACTIONS (1)
  - Weight increased [Unknown]
